FAERS Safety Report 8501045-2 (Version None)
Quarter: 2012Q2

REPORT INFORMATION
  Report Type: 
  Country: None (occurrence: None)
  Receive Date: 20120405
  Receipt Date: 20110218
  Transmission Date: 20120825
  Serious: Yes (Other)
  Sender: FDA-Public Use
  Company Number: PHHY2011US14118

PATIENT
  Age: 85 Year
  Sex: Female

DRUGS (8)
  1. LIPITOR [Concomitant]
  2. MULTIVITAMINS (ASCORBIC ACID, ERGOCALCIFEROL, FOLIC ACID, NICOTINAMIDE [Concomitant]
  3. VERAPAMIL [Concomitant]
  4. RECLAST [Suspect]
     Dosage: 5 MG/100 ML YEARLY, INFUSION
     Dates: start: 20100701
  5. PREVISON (MESTRANOL, NORETYNODREL-S) [Concomitant]
  6. CALCIUM CARBONATE [Concomitant]
  7. SULFALENE (SULFALENE) [Concomitant]
  8. PRILOSEC [Concomitant]

REACTIONS (3)
  - MYALGIA [None]
  - BONE PAIN [None]
  - ARTHRALGIA [None]
